FAERS Safety Report 16771457 (Version 5)
Quarter: 2019Q4

REPORT INFORMATION
  Report Type: Spontaneous
  Country: US (occurrence: US)
  Receive Date: 20190904
  Receipt Date: 20191022
  Transmission Date: 20200122
  Serious: Yes (Hospitalization, Other)
  Sender: FDA-Public Use
  Company Number: US-PFIZER INC-2019378233

PATIENT
  Age: 84 Year
  Sex: Male
  Weight: 63.5 kg

DRUGS (2)
  1. LYRICA [Suspect]
     Active Substance: PREGABALIN
     Indication: PAIN IN EXTREMITY
  2. LYRICA [Suspect]
     Active Substance: PREGABALIN
     Indication: NEUROPATHY PERIPHERAL
     Dosage: UNK
     Dates: start: 201902, end: 201906

REACTIONS (5)
  - Coma [Recovered/Resolved]
  - Fall [Unknown]
  - Wrist fracture [Recovered/Resolved]
  - Hypoacusis [Unknown]
  - Tremor [Unknown]

NARRATIVE: CASE EVENT DATE: 2019
